FAERS Safety Report 8721361 (Version 2)
Quarter: 2012Q4

REPORT INFORMATION
  Report Type: Report from Study
  Country: JP (occurrence: JP)
  Receive Date: 20120813
  Receipt Date: 20120911
  Transmission Date: 20130627
  Serious: Yes (Life-Threatening, Hospitalization, Other)
  Sender: FDA-Public Use
  Company Number: JP-GILEAD-2012-0059574

PATIENT
  Age: 72 Year
  Sex: Male

DRUGS (5)
  1. EMTRICITABINE/TENOFOVIR DISOPROXIL FUMARATE [Suspect]
     Indication: HIV INFECTION
     Dosage: 1 DF, QD
     Dates: start: 20050909
  2. STOCRIN [Suspect]
     Indication: HIV INFECTION
     Dosage: 600 mg, QD
     Route: 048
     Dates: start: 20060726
  3. STOCRIN [Suspect]
     Dosage: 600 mg, QD
     Route: 048
     Dates: start: 20050825, end: 20060725
  4. NERIPROCT [Concomitant]
     Dosage: UNK
  5. GASTER [Concomitant]
     Dosage: UNK
     Dates: start: 20070402

REACTIONS (1)
  - Lacunar infarction [Not Recovered/Not Resolved]
